FAERS Safety Report 12831165 (Version 1)
Quarter: 2016Q4

REPORT INFORMATION
  Report Type: Spontaneous
  Country: US (occurrence: US)
  Receive Date: 20161008
  Receipt Date: 20161008
  Transmission Date: 20170207
  Serious: Yes (Hospitalization)
  Sender: FDA-Public Use
  Company Number: US-AMGEN-USASP2016135359

PATIENT
  Age: 83 Year
  Sex: Female

DRUGS (3)
  1. VITAMIN D3 [Concomitant]
     Active Substance: CHOLECALCIFEROL
     Dosage: 50000 IU, UNK
  2. CALCITRIOL. [Concomitant]
     Active Substance: CALCITRIOL
     Dosage: 0.25 MUG, QWK
  3. PROLIA [Suspect]
     Active Substance: DENOSUMAB
     Indication: PRODUCT USED FOR UNKNOWN INDICATION
     Dosage: UNK
     Route: 065

REACTIONS (2)
  - Hypocalcaemia [Unknown]
  - Chest pain [Unknown]

NARRATIVE: CASE EVENT DATE: 20160922
